FAERS Safety Report 25806024 (Version 1)
Quarter: 2025Q3

REPORT INFORMATION
  Report Type: Report from Study
  Country: US (occurrence: US)
  Receive Date: 20250916
  Receipt Date: 20250916
  Transmission Date: 20251021
  Serious: Yes (Other)
  Sender: ESTEVE
  Company Number: US-ESTEVE-2025-00823

PATIENT
  Age: 66 Year
  Sex: Male

DRUGS (20)
  1. LYSODREN [Suspect]
     Active Substance: MITOTANE
     Indication: Adrenal gland cancer
     Dates: start: 20221208
  2. LYSODREN [Suspect]
     Active Substance: MITOTANE
  3. ROSUVASTATIN [Concomitant]
     Active Substance: ROSUVASTATIN
  4. METOPROL SUC [Concomitant]
  5. SOLU-CORTEF [Concomitant]
     Active Substance: HYDROCORTISONE SODIUM SUCCINATE
  6. PREDNISONE [Concomitant]
     Active Substance: PREDNISONE
  7. PLAQUENIL [Concomitant]
     Active Substance: HYDROXYCHLOROQUINE SULFATE
  8. NITROGLYCERN [Concomitant]
  9. NIFEDIPINE [Concomitant]
     Active Substance: NIFEDIPINE
  10. VITAMINS [Concomitant]
     Active Substance: VITAMINS
  11. MIRTAZAPINE [Concomitant]
     Active Substance: MIRTAZAPINE
  12. METOPROLOL TARTRATE [Concomitant]
     Active Substance: METOPROLOL TARTRATE
  13. LOSARTAN POTASSIUM [Concomitant]
     Active Substance: LOSARTAN POTASSIUM
  14. A-HYDROCORT [Concomitant]
     Active Substance: HYDROCORTISONE SODIUM SUCCINATE
  15. FOLIC ACID [Concomitant]
     Active Substance: FOLIC ACID
  16. FERROUS SULFATE [Concomitant]
     Active Substance: FERROUS SULFATE
  17. CRESTOR [Concomitant]
     Active Substance: ROSUVASTATIN CALCIUM
  18. CORTEF [Concomitant]
     Active Substance: HYDROCORTISONE
  19. ASPIRIN [Concomitant]
     Active Substance: ASPIRIN
  20. AMLODIPINE [Concomitant]
     Active Substance: AMLODIPINE BESYLATE

REACTIONS (2)
  - Adrenal insufficiency [Unknown]
  - Product dose omission issue [Unknown]
